FAERS Safety Report 14001455 (Version 1)
Quarter: 2017Q3

REPORT INFORMATION
  Report Type: Spontaneous
  Country: FR (occurrence: FR)
  Receive Date: 20170922
  Receipt Date: 20170922
  Transmission Date: 20171128
  Serious: Yes (Other)
  Sender: FDA-Public Use
  Company Number: FR-SA-2017SA176319

PATIENT
  Age: 75 Year
  Sex: Female

DRUGS (2)
  1. PLAVIX [Suspect]
     Active Substance: CLOPIDOGREL BISULFATE
     Indication: AORTIC SURGERY
     Route: 048
  2. PLAVIX [Suspect]
     Active Substance: CLOPIDOGREL BISULFATE
     Indication: AORTIC SURGERY
     Route: 048

REACTIONS (4)
  - Petechiae [Unknown]
  - Epistaxis [Unknown]
  - Eye haemorrhage [Recovered/Resolved]
  - Chest pain [Unknown]
